FAERS Safety Report 5022978-8 (Version None)
Quarter: 2006Q2

REPORT INFORMATION
  Report Type: 
  Country: None (occurrence: None)
  Receive Date: 20060426
  Receipt Date: 20060106
  Transmission Date: 20061013
  Serious: Yes (Other)
  Sender: FDA-Public Use
  Company Number: 2006004750

PATIENT
  Age: 61 Year
  Sex: Female

DRUGS (1)
  1. LYRICA [Suspect]
     Indication: ILL-DEFINED DISORDER
     Dates: end: 20060101

REACTIONS (3)
  - OEDEMA PERIPHERAL [None]
  - PAIN IN EXTREMITY [None]
  - SWELLING FACE [None]
